FAERS Safety Report 4486482-8 (Version None)
Quarter: 2004Q4

REPORT INFORMATION
  Report Type: 
  Country: None (occurrence: None)
  Receive Date: 20041021
  Receipt Date: 20041013
  Transmission Date: 20050328
  Serious: Yes (Life-Threatening, Hospitalization)
  Sender: FDA-Public Use
  Company Number: STA-AE-04-MTX-487

PATIENT
  Age: 12 Year
  Sex: Female

DRUGS (7)
  1. METHOTREXATE [Suspect]
     Indication: DERMATOMYOSITIS
     Dosage: 10 MG 1 X PER WK, ORAL
     Route: 048
     Dates: start: 20040623, end: 20040707
  2. PREDNISOLONE [Concomitant]
  3. METHYLPREDNISOLONE [Concomitant]
  4. CALCIUM CARBONATE (CALCIUM CARBONATE) [Concomitant]
  5. PENICILLIN V [Concomitant]
  6. FLUCONAZOLE [Concomitant]
  7. IBUPROFEN [Concomitant]

REACTIONS (3)
  - ASPARTATE AMINOTRANSFERASE INCREASED [None]
  - JAUNDICE [None]
  - LIVER TRANSPLANT [None]
